FAERS Safety Report 20066574 (Version 3)
Quarter: 2022Q1

REPORT INFORMATION
  Report Type: Spontaneous
  Country: DE (occurrence: DE)
  Receive Date: 20211115
  Receipt Date: 20220110
  Transmission Date: 20220423
  Serious: Yes (Other)
  Sender: FDA-Public Use
  Company Number: DE-NAPPMUNDI-GBR-2021-0091881

PATIENT
  Age: 55 Year
  Sex: Female

DRUGS (3)
  1. NALOXONE HYDROCHLORIDE\OXYCODONE HYDROCHLORIDE [Suspect]
     Active Substance: NALOXONE HYDROCHLORIDE\OXYCODONE HYDROCHLORIDE
     Indication: Pain
     Dosage: 3 DOSAGE FORM, ONCE A DAY (1 TABLET, TID (STRENGTH 10/5 MG)
     Route: 065
  2. NALOXONE HYDROCHLORIDE\OXYCODONE HYDROCHLORIDE [Suspect]
     Active Substance: NALOXONE HYDROCHLORIDE\OXYCODONE HYDROCHLORIDE
     Indication: Product used for unknown indication
     Dosage: 90 MILLIGRAM, ONCE A DAY (30 MG, TID )
     Route: 065
     Dates: start: 2020
  3. OXYCODONE HYDROCHLORIDE [Suspect]
     Active Substance: OXYCODONE HYDROCHLORIDE
     Indication: Pain
     Dosage: UNK(UNK (STRENGTH 10MG) )
     Route: 065
     Dates: start: 2021

REACTIONS (6)
  - Inadequate analgesia [Recovered/Resolved]
  - Drug dependence [Recovered/Resolved]
  - Constipation [Recovered/Resolved]
  - Product residue present [Recovered/Resolved]
  - Therapeutic response shortened [Recovered/Resolved]
  - Inappropriate schedule of product administration [Recovered/Resolved]
